FAERS Safety Report 13793481 (Version 4)
Quarter: 2017Q3

REPORT INFORMATION
  Report Type: Spontaneous
  Country: US (occurrence: US)
  Receive Date: 20170726
  Receipt Date: 20170818
  Transmission Date: 20171127
  Serious: Yes (Disabling, Other)
  Sender: FDA-Public Use
  Company Number: US-SAOL THERAPEUTICS-2017SAO01241

PATIENT
  Age: 50 Year
  Sex: Female

DRUGS (2)
  1. BACLOFEN. [Suspect]
     Active Substance: BACLOFEN
     Indication: RADICULOPATHY
     Dosage: 140 ?G, \DAY
     Route: 037
  2. BACLOFEN. [Suspect]
     Active Substance: BACLOFEN
     Indication: SPINAL PAIN

REACTIONS (8)
  - Complication associated with device [Not Recovered/Not Resolved]
  - Asthenia [Not Recovered/Not Resolved]
  - Implant site pain [Not Recovered/Not Resolved]
  - Paralysis [Recovering/Resolving]
  - Device dislocation [Unknown]
  - Swelling [Not Recovered/Not Resolved]
  - Muscle spasms [Not Recovered/Not Resolved]
  - Extradural haematoma [Unknown]

NARRATIVE: CASE EVENT DATE: 2017
